FAERS Safety Report 8051134-4 (Version None)
Quarter: 2012Q1

REPORT INFORMATION
  Report Type: 
  Country: None (occurrence: None)
  Receive Date: 20120117
  Receipt Date: 20120112
  Transmission Date: 20120608
  Serious: Yes (Hospitalization)
  Sender: FDA-Public Use
  Company Number: PHHY2012FR003301

PATIENT
  Age: 40 Year
  Sex: Male

DRUGS (2)
  1. EXFORGE [Suspect]
     Dosage: UNK UKN, UNK
     Dates: end: 20110101
  2. RASILEZ HCT [Suspect]
     Indication: HYPERTENSION
     Dosage: 150 MG/12.5 MG

REACTIONS (2)
  - ELECTRIC SHOCK [None]
  - CARDIAC FLUTTER [None]
